FAERS Safety Report 5902143-X (Version None)
Quarter: 2008Q3

REPORT INFORMATION
  Report Type: 
  Country: None (occurrence: None)
  Receive Date: 20080929
  Receipt Date: 20080917
  Transmission Date: 20090109
  Serious: Yes (Other)
  Sender: FDA-Public Use
  Company Number: JP-PFIZER INC-2008073502

PATIENT

DRUGS (2)
  1. VFEND [Suspect]
     Indication: SCEDOSPORIUM INFECTION
     Dosage: DAILY DOSE:400MG
     Route: 042
     Dates: start: 20080601
  2. VFEND [Suspect]
     Indication: SCEDOSPORIUM INFECTION
     Dosage: DAILY DOSE:300MG
     Route: 048
     Dates: start: 20080101

REACTIONS (2)
  - LIVER FUNCTION TEST ABNORMAL [None]
  - SCEDOSPORIUM INFECTION [None]
